FAERS Safety Report 9911387 (Version 3)
Quarter: 2015Q3

REPORT INFORMATION
  Report Type: Spontaneous
  Country: US (occurrence: US)
  Receive Date: 20140219
  Receipt Date: 20150812
  Transmission Date: 20151125
  Serious: No
  Sender: FDA-Public Use
  Company Number: US-GILEAD-2012-0055442

PATIENT
  Age: 82 Year
  Sex: Female

DRUGS (1)
  1. LETAIRIS [Suspect]
     Active Substance: AMBRISENTAN
     Indication: PRODUCT USED FOR UNKNOWN INDICATION
     Dosage: UNK
     Route: 048

REACTIONS (9)
  - Gastrooesophageal reflux disease [Unknown]
  - Diarrhoea [Unknown]
  - Rhinorrhoea [Unknown]
  - Nasal congestion [Unknown]
  - Productive cough [Unknown]
  - Dizziness [Unknown]
  - Dyspnoea exertional [Unknown]
  - Fatigue [Unknown]
  - Hypotension [Unknown]
